FAERS Safety Report 9813428 (Version 2)
Quarter: 2014Q1

REPORT INFORMATION
  Report Type: Spontaneous
  Country: US (occurrence: US)
  Receive Date: 20140113
  Receipt Date: 20140317
  Transmission Date: 20141002
  Serious: Yes (Death, Other)
  Sender: FDA-Public Use
  Company Number: US-GILEAD-2014-0091833

PATIENT
  Sex: Male
  Weight: 172.34 kg

DRUGS (8)
  1. LETAIRIS [Suspect]
     Indication: PULMONARY ARTERIAL HYPERTENSION
     Dosage: 5 MG, UNK
     Route: 048
     Dates: start: 20130812, end: 20140106
  2. ASA [Concomitant]
     Dosage: UNK
     Dates: start: 20130729
  3. FUROSEMIDE [Concomitant]
     Dosage: UNK
     Dates: start: 20120402
  4. GLIPIZIDE [Concomitant]
     Dosage: UNK
     Dates: start: 20120402
  5. HYZAAR [Concomitant]
     Dosage: UNK
     Dates: start: 20120402
  6. METOPROLOL TARTRATE [Concomitant]
  7. PLAVIX [Concomitant]
     Dosage: UNK
     Dates: start: 20130528
  8. KCL [Concomitant]
     Dosage: UNK
     Dates: start: 20120402

REACTIONS (1)
  - Pulmonary embolism [Fatal]
